FAERS Safety Report 5193347-5 (Version None)
Quarter: 2006Q4

REPORT INFORMATION
  Report Type: 
  Country: None (occurrence: None)
  Receive Date: 20061228
  Receipt Date: 20061006
  Transmission Date: 20070319
  Serious: No
  Sender: FDA-Public Use
  Company Number: US-GLAXOSMITHKLINE-A0622748A

PATIENT
  Age: 44 Year
  Sex: Female

DRUGS (4)
  1. AVODART [Suspect]
     Indication: ACCIDENTAL EXPOSURE
     Dosage: 1CAP SINGLE DOSE
     Route: 048
     Dates: start: 20061006, end: 20061006
  2. PAIN MEDICATION [Concomitant]
  3. WELLBUTRIN [Concomitant]
  4. PROCARDIA [Concomitant]

REACTIONS (2)
  - ACCIDENTAL EXPOSURE [None]
  - DRUG EXPOSURE DURING PREGNANCY [None]
